FAERS Safety Report 24748443 (Version 1)
Quarter: 2024Q4

REPORT INFORMATION
  Report Type: Spontaneous
  Country: CN (occurrence: CN)
  Receive Date: 20241218
  Receipt Date: 20241218
  Transmission Date: 20250114
  Serious: Yes (Hospitalization, Other)
  Sender: BAXTER
  Company Number: None

PATIENT
  Age: 1 Year
  Sex: Female
  Weight: 9.2 kg

DRUGS (10)
  1. CYCLOPHOSPHAMIDE [Suspect]
     Active Substance: CYCLOPHOSPHAMIDE
     Indication: Chemotherapy
     Dosage: 0.44 G, ONE TIME IN ONE DAY, DILUTED WITH 100 ML OF GLUCOSE AND SODIUM CHLORIDE (4:1)
     Route: 041
     Dates: start: 20241022, end: 20241022
  2. CYCLOPHOSPHAMIDE [Suspect]
     Active Substance: CYCLOPHOSPHAMIDE
     Indication: Neuroblastoma
  3. SODIUM CHLORIDE [Suspect]
     Active Substance: SODIUM CHLORIDE
     Indication: Medication dilution
     Dosage: 100 ML SODIUM CHLORIDE, 100 ML GLUCOSE (1:4), ONE TIME IN ONE DAY, USED TO DILUTE 0.44 G OF CYCLOPHO
     Route: 041
     Dates: start: 20241022, end: 20241022
  4. SODIUM CHLORIDE [Suspect]
     Active Substance: SODIUM CHLORIDE
     Dosage: (0.9%) 100 ML, ONE TIME IN ONE DAY, USED TO DILUTE 13 MG OF EPIRUBICIN HYDROCHLORIDE-INJECTION
     Route: 041
     Dates: start: 20241022, end: 20241022
  5. ANHYDROUS DEXTROSE [Suspect]
     Active Substance: ANHYDROUS DEXTROSE
     Indication: Medication dilution
     Dosage: 100 ML GLUCOSE, 100 ML SODIUM CHLORIDE (4:1), ONE TIME IN ONE DAY, USED TO DILUTE 0.44 G OF CYCLOPHO
     Route: 041
     Dates: start: 20241022, end: 20241022
  6. ANHYDROUS DEXTROSE [Suspect]
     Active Substance: ANHYDROUS DEXTROSE
     Dosage: (5%) 250 ML, ONE TIME IN ONE DAY, USED TO DILUTE 245 MG OF CARBOPLATIN-INJECTION
     Route: 041
     Dates: start: 20241022, end: 20241022
  7. CARBOPLATIN [Suspect]
     Active Substance: CARBOPLATIN
     Indication: Chemotherapy
     Dosage: 245 MG, ONE TIME IN ONE DAY, DILUTED WITH 250 ML OF 5% GLUCOSE
     Route: 041
     Dates: start: 20241022, end: 20241022
  8. CARBOPLATIN [Suspect]
     Active Substance: CARBOPLATIN
     Indication: Neuroblastoma
  9. EPIRUBICIN HYDROCHLORIDE [Suspect]
     Active Substance: EPIRUBICIN HYDROCHLORIDE
     Indication: Chemotherapy
     Dosage: 13 MG, ONE TIME IN ONE DAY, DILUTED WITH 100 ML OF 0.9% SODIUM CHLORIDE
     Route: 041
     Dates: start: 20241022, end: 20241022
  10. EPIRUBICIN HYDROCHLORIDE [Suspect]
     Active Substance: EPIRUBICIN HYDROCHLORIDE
     Indication: Neuroblastoma

REACTIONS (1)
  - Myelosuppression [Recovering/Resolving]

NARRATIVE: CASE EVENT DATE: 20241101
